FAERS Safety Report 23385118 (Version 1)
Quarter: 2024Q1

REPORT INFORMATION
  Report Type: Report from Study
  Country: US (occurrence: None)
  Receive Date: 20240110
  Receipt Date: 20240110
  Transmission Date: 20240409
  Serious: Yes (Death)
  Sender: FDA-Public Use
  Company Number: 2024A005585

PATIENT
  Age: 31617 Day
  Sex: Female
  Weight: 67.1 kg

DRUGS (12)
  1. CALQUENCE [Suspect]
     Active Substance: ACALABRUTINIB
     Indication: Chronic lymphocytic leukaemia
     Route: 048
     Dates: start: 20220422
  2. METOPROLOL TARTRATE [Concomitant]
     Active Substance: METOPROLOL TARTRATE
  3. ACYCLOVIR [Concomitant]
     Active Substance: ACYCLOVIR
  4. METFORMIN HYDROCHLORIDE [Concomitant]
     Active Substance: METFORMIN HYDROCHLORIDE
  5. LOSARTAN [Concomitant]
     Active Substance: LOSARTAN
  6. TRAVATAN Z [Concomitant]
     Active Substance: TRAVOPROST
  7. ATORVASTATIN [Concomitant]
     Active Substance: ATORVASTATIN
  8. TRAVOPROST [Concomitant]
     Active Substance: TRAVOPROST
  9. VITAMIN B [Concomitant]
     Active Substance: VITAMIN B
  10. FOLATE SODIUM [Concomitant]
     Active Substance: FOLATE SODIUM
  11. HUMAN IMMUNOGLOBULIN G [Concomitant]
     Active Substance: HUMAN IMMUNOGLOBULIN G
  12. LUCENTIS [Concomitant]
     Active Substance: RANIBIZUMAB

REACTIONS (1)
  - Death [Fatal]

NARRATIVE: CASE EVENT DATE: 20240107
